FAERS Safety Report 6881347-6 (Version None)
Quarter: 2010Q2

REPORT INFORMATION
  Report Type: 
  Country: None (occurrence: None)
  Receive Date: 20100630
  Receipt Date: 20090217
  Transmission Date: 20101027
  Serious: No
  Sender: FDA-Public Use
  Company Number: 2009-01040

PATIENT
  Sex: Female

DRUGS (3)
  1. ZICAM COLD REMEDY NASAL GEL [Suspect]
     Dosage: 9 DOSES X 3 DAYS
     Dates: start: 20090212, end: 20090215
  2. HYDROCHLOROTHIAZIED [Concomitant]
  3. LISINOPRIL [Concomitant]

REACTIONS (2)
  - AGEUSIA [None]
  - ANOSMIA [None]
